FAERS Safety Report 9688662 (Version 2)
Quarter: 2013Q4

REPORT INFORMATION
  Report Type: Spontaneous
  Country: DE (occurrence: None)
  Receive Date: 20131112
  Receipt Date: 20131219
  Transmission Date: 20140711
  Serious: Yes (Hospitalization, Disabling)
  Sender: FDA-Public Use
  Company Number: VAL_02817_2013

PATIENT
  Age: 24 Month
  Sex: Female

DRUGS (22)
  1. CALCITROL [Suspect]
     Indication: PRODUCT USED FOR UNKNOWN INDICATION
     Dosage: 0.2 UG, DF
     Dates: start: 20110427
  2. TACROLIMUS [Suspect]
     Indication: INFECTION
     Dosage: LAST DOSE PRIOR TO SEE 17-JAN-2012 (4.5MG) ORAL
     Route: 048
     Dates: start: 20110510
  3. URBASON [Suspect]
     Indication: PRODUCT USED FOR UNKNOWN INDICATION
     Dosage: 4 MG LAST DOSE PRIOR TO SAE: 03-MAY2011, 17-JAN-2012, 23-JAN-201, 09-MAR-2012, 30-MAR2012, 10-MAY-2012, ORAL
     Route: 048
     Dates: start: 20110321
  4. VALCYTE [Suspect]
     Indication: PROPHYLACTIC CHEMOTHERAPY
     Dosage: LAST DOSE PRIOR TO SAE: 03-MAY-2011 ORAL
     Dates: start: 20110325
  5. EVEROLIMUS [Suspect]
     Indication: INFECTION
     Dosage: LAST DOSE PRIOR TO SAE: 23-JAN-2012, 09-MAR-2012 (1.5 MG) ORAL
     Route: 048
     Dates: start: 20120118
  6. AZATHIOPRINE [Suspect]
     Indication: PROPHYLAXIS AGAINST TRANSPLANT REJECTION
     Dosage: LAST DOSE PRIOR TO SAE: 03-MAY-2011, 01-JAN-2012, 23-JAN-2012, 09-MAR-2012, 30-MAR-2013, 20-MAY-2012
     Dates: start: 20110325
  7. RANITIDINE [Concomitant]
  8. COTORIMOXAZOLE [Concomitant]
  9. CHOLECALCIFEROL [Concomitant]
  10. FLUCONAZOLE [Concomitant]
  11. FERRO SANOL [Concomitant]
  12. FLUDROCORTISON [Concomitant]
  13. KEPINOL [Concomitant]
  14. AMOXICLAV /01000301/ [Concomitant]
  15. NEORECORMON [Concomitant]
  16. ATACAND [Concomitant]
  17. AMLODIPIN /00972401/ [Concomitant]
  18. TENORMIN [Concomitant]
  19. DELIX /00885601/ [Concomitant]
  20. CYCLOSPORINE [Concomitant]
  21. NYSTATIN [Concomitant]
  22. CEFUROXIM /00454602/ [Concomitant]

REACTIONS (7)
  - Pyelonephritis [None]
  - Lower respiratory tract infection [None]
  - Pneumonia [None]
  - Gastroenteritis [None]
  - Pneumocystis jirovecii pneumonia [None]
  - Post transplant lymphoproliferative disorder [None]
  - Epstein-Barr virus infection [None]
